FAERS Safety Report 8442717-8 (Version None)
Quarter: 2012Q2

REPORT INFORMATION
  Report Type: 
  Country: None (occurrence: None)
  Receive Date: 20120615
  Receipt Date: 20120604
  Transmission Date: 20120825
  Serious: Yes (Hospitalization, Other)
  Sender: FDA-Public Use
  Company Number: CA-CELGENEUS-028-21880-12023087

PATIENT
  Sex: Male

DRUGS (11)
  1. REVLIMID [Suspect]
     Dosage: 20 MILLIGRAM
     Route: 048
     Dates: start: 20111201, end: 20120201
  2. RANITIDINE [Concomitant]
     Dosage: 150 MILLIGRAM
     Route: 065
     Dates: end: 20120213
  3. REVLIMID [Suspect]
     Dosage: 15 MILLIGRAM
     Route: 048
     Dates: start: 20120201
  4. REVLIMID [Suspect]
     Indication: MULTIPLE MYELOMA
     Dosage: 25 MILLIGRAM
     Route: 048
     Dates: start: 20111101
  5. PAMIDRONATE DISODIUM [Concomitant]
     Route: 065
  6. THALOMID [Suspect]
     Indication: MULTIPLE MYELOMA
     Dosage: 50MG-100MG
     Route: 048
     Dates: start: 20100910, end: 20110701
  7. THALOMID [Suspect]
     Dosage: 50 MILLIGRAM
     Route: 048
     Dates: start: 20110701, end: 20111101
  8. PANTOPRAZOLE [Concomitant]
     Dosage: 40 MILLIGRAM
     Route: 065
  9. CYCLOPHOSPHAMIDE [Concomitant]
     Route: 065
     Dates: start: 20100101
  10. DEXAMETHASONE [Concomitant]
     Indication: MULTIPLE MYELOMA
     Dosage: 40 MILLIGRAM
     Route: 065
  11. COUMADIN [Concomitant]
     Route: 065

REACTIONS (14)
  - NEPHROLITHIASIS [None]
  - ABDOMINAL PAIN [None]
  - PNEUMONIA [None]
  - ANAEMIA [None]
  - DIARRHOEA [None]
  - MUSCLE SPASMS [None]
  - ORAL PAIN [None]
  - NEUROPATHY PERIPHERAL [None]
  - ATRIAL FIBRILLATION [None]
  - HAEMORRHOIDS [None]
  - DYSPEPSIA [None]
  - NAUSEA [None]
  - UPPER RESPIRATORY TRACT INFECTION [None]
  - MULTIPLE MYELOMA [None]
